FAERS Safety Report 5830020-1 (Version None)
Quarter: 2008Q3

REPORT INFORMATION
  Report Type: 
  Country: None (occurrence: None)
  Receive Date: 20080801
  Receipt Date: 20080729
  Transmission Date: 20090109
  Serious: Yes (Other)
  Sender: FDA-Public Use
  Company Number: JP-AVENTIS-200812367JP

PATIENT

DRUGS (2)
  1. TAXOTERE [Suspect]
     Indication: GASTRIC CANCER
     Route: 033
  2. TS-1 [Concomitant]
     Indication: GASTRIC CANCER
     Route: 048

REACTIONS (1)
  - PNEUMATOSIS INTESTINALIS [None]
